FAERS Safety Report 4280027-3 (Version None)
Quarter: 2004Q1

REPORT INFORMATION
  Report Type: 
  Country: None (occurrence: None)
  Receive Date: 20040128
  Receipt Date: 20040116
  Transmission Date: 20041129
  Serious: Yes (Hospitalization, Other)
  Sender: FDA-Public Use
  Company Number: PHBS2004DE00982

PATIENT
  Sex: Female
  Weight: 1 kg

DRUGS (4)
  1. METOPROLOL TARTRATE [Suspect]
     Route: 064
  2. LOSARTAN [Suspect]
     Route: 064
  3. HYDROCHLOROTHIAZIDE [Suspect]
     Route: 064
  4. BETAMETHASONE [Concomitant]

REACTIONS (8)
  - APGAR SCORE LOW [None]
  - CAESAREAN SECTION [None]
  - DRUG EXPOSURE DURING PREGNANCY [None]
  - FOETAL GROWTH RETARDATION [None]
  - FOETAL HEART RATE ABNORMAL [None]
  - NEONATAL APNOEIC ATTACK [None]
  - NEONATAL RESPIRATORY DISTRESS SYNDROME [None]
  - PREMATURE BABY [None]
